FAERS Safety Report 7384706-0 (Version None)
Quarter: 2011Q1

REPORT INFORMATION
  Report Type: 
  Country: None (occurrence: None)
  Receive Date: 20110330
  Receipt Date: 20110318
  Transmission Date: 20110831
  Serious: Yes (Hospitalization, Other)
  Sender: FDA-Public Use
  Company Number: PHHY2011JP19852

PATIENT
  Age: 56 Year
  Sex: Female

DRUGS (5)
  1. METHYLPREDNISOLONE [Concomitant]
     Dosage: 1 MG/KG
  2. CYCLOSPORINE [Suspect]
     Indication: BONE MARROW TRANSPLANT
     Dosage: 3 MG/KG,
     Dates: start: 20100609
  3. METHOTREXATE [Concomitant]
     Indication: BONE MARROW TRANSPLANT
  4. METHYLPREDNISOLONE [Concomitant]
     Dosage: 5 MG/KG
  5. BUSULFAN [Concomitant]
     Indication: BONE MARROW TRANSPLANT

REACTIONS (5)
  - RASH [None]
  - PYREXIA [None]
  - HISTIOCYTOSIS HAEMATOPHAGIC [None]
  - SERUM FERRITIN INCREASED [None]
  - THROMBOCYTOPENIA [None]
